FAERS Safety Report 17857174 (Version 2)
Quarter: 2020Q2

REPORT INFORMATION
  Report Type: Spontaneous
  Country: BR (occurrence: BR)
  Receive Date: 20200603
  Receipt Date: 20200629
  Transmission Date: 20200714
  Serious: Yes (Other)
  Sender: FDA-Public Use
  Company Number: BR-GE HEALTHCARE LIFE SCIENCES-2020CSU002122

PATIENT

DRUGS (9)
  1. ROSUVASTATIN. [Concomitant]
     Active Substance: ROSUVASTATIN
  2. OMNISCAN [Suspect]
     Active Substance: GADODIAMIDE
     Indication: MAGNETIC RESONANCE IMAGING ABDOMINAL
  3. VISIPAQUE [Suspect]
     Active Substance: IODIXANOL
     Indication: COMPUTERISED TOMOGRAM ABDOMEN
     Dosage: 90 ML AT THE RATE OF 3 ML/SEC, ONCE
     Route: 042
     Dates: start: 20200210, end: 20200210
  4. OMNISCAN [Suspect]
     Active Substance: GADODIAMIDE
     Indication: POSTMENOPAUSAL HAEMORRHAGE
  5. VISIPAQUE [Suspect]
     Active Substance: IODIXANOL
     Indication: ABDOMINAL PAIN
  6. GLIFAGE [Concomitant]
     Active Substance: METFORMIN HYDROCHLORIDE
  7. ALTIVA [Concomitant]
     Indication: PROPHYLAXIS
     Dosage: 1 PILL (120 MG) 2 HOURS BEFORE THE EXAM
     Route: 048
  8. OMNISCAN [Suspect]
     Active Substance: GADODIAMIDE
     Indication: MAGNETIC RESONANCE NEUROGRAPHY
     Dosage: 15 ML, AT 3ML/S BY INJECTOR, SINGLE
     Route: 042
     Dates: start: 20200210, end: 20200210
  9. SALINE [SODIUM CHLORIDE] [Concomitant]
     Active Substance: SODIUM CHLORIDE
     Dosage: 500 ML

REACTIONS (1)
  - Type IV hypersensitivity reaction [Recovered/Resolved]

NARRATIVE: CASE EVENT DATE: 20200211
